FAERS Safety Report 7905599-6 (Version None)
Quarter: 2011Q4

REPORT INFORMATION
  Report Type: 
  Country: None (occurrence: None)
  Receive Date: 20111110
  Receipt Date: 20111101
  Transmission Date: 20120403
  Serious: No
  Sender: FDA-Public Use
  Company Number: US-BIOGENIDEC-2011BI041940

PATIENT
  Sex: Female

DRUGS (1)
  1. TYSABRI [Suspect]
     Indication: MULTIPLE SCLEROSIS
     Route: 042
     Dates: start: 20070222

REACTIONS (12)
  - PARAESTHESIA [None]
  - FRUSTRATION [None]
  - COGNITIVE DISORDER [None]
  - RAPID EYE MOVEMENTS SLEEP ABNORMAL [None]
  - COORDINATION ABNORMAL [None]
  - GENERAL SYMPTOM [None]
  - DYSGRAPHIA [None]
  - CONFUSIONAL STATE [None]
  - POOR QUALITY SLEEP [None]
  - HYPOAESTHESIA [None]
  - TREMOR [None]
  - NOCTURIA [None]
